FAERS Safety Report 8918229 (Version 1)
Quarter: 2012Q4

REPORT INFORMATION
  Report Type: 
  Country: US (occurrence: US)
  Receive Date: 20121120
  Receipt Date: 20121120
  Transmission Date: 20130627
  Serious: No
  Sender: FDA-Public Use
  Company Number: US-ASTRAZENECA-2012SE24788

PATIENT
  Age: 31 Year
  Sex: Female

DRUGS (2)
  1. NEXIUM [Suspect]
     Route: 048
  2. TOPROL XL [Suspect]
     Route: 048

REACTIONS (9)
  - Convulsion [Unknown]
  - Drug hypersensitivity [Unknown]
  - Scratch [Unknown]
  - Pruritus [Unknown]
  - Muscle spasms [Unknown]
  - Oedema mouth [Unknown]
  - Swollen tongue [Unknown]
  - Respiratory tract congestion [Unknown]
  - Rash [Unknown]
